FAERS Safety Report 15603787 (Version 2)
Quarter: 2018Q4

REPORT INFORMATION
  Report Type: Spontaneous
  Country: FR (occurrence: TN)
  Receive Date: 20181109
  Receipt Date: 20181116
  Transmission Date: 20190205
  Serious: Yes (Life-Threatening, Hospitalization, Other)
  Sender: FDA-Public Use
  Company Number: FR-009507513-1808TUN009887

PATIENT
  Age: 70 Year
  Sex: Female
  Weight: 54 kg

DRUGS (2)
  1. FOSAVANCE [Suspect]
     Active Substance: ALENDRONATE SODIUM\CHOLECALCIFEROL
     Indication: OSTEOPOROSIS
     Dosage: 5600 INTERNATIONAL UNIT PER WEEK
     Route: 048
     Dates: start: 2007, end: 20180718
  2. DEPAKINE CHRONO [Concomitant]
     Active Substance: VALPROATE SODIUM
     Indication: EPILEPSY
     Dosage: 1 DF, QD

REACTIONS (4)
  - Fracture [Unknown]
  - Osteoporosis [Unknown]
  - Femur fracture [Not Recovered/Not Resolved]
  - Stress fracture [Unknown]

NARRATIVE: CASE EVENT DATE: 2015
